FAERS Safety Report 7214126-0 (Version None)
Quarter: 2011Q1

REPORT INFORMATION
  Report Type: 
  Country: None (occurrence: None)
  Receive Date: 20110107
  Receipt Date: 20101228
  Transmission Date: 20110831
  Serious: Yes (Other)
  Sender: FDA-Public Use
  Company Number: US-SOLVAY-00210007689

PATIENT
  Age: 55 Year
  Sex: Male
  Weight: 72.727 kg

DRUGS (10)
  1. OXYCONTIN [Concomitant]
     Indication: INTERVERTEBRAL DISC PROTRUSION
     Dosage: DAILY DOSE: 320 MILLIGRAM(S)
     Route: 048
  2. FENTORA [Concomitant]
     Dosage: DAILY DOSE: 1600 MICROGRAM(S)
     Route: 048
     Dates: start: 20101101
  3. ANDROGEL [Suspect]
     Dosage: DAILY DOSE: 2.5 GRAM(S)
     Route: 062
     Dates: start: 20100601
  4. GLUCOPHAGE XR [Concomitant]
     Indication: DIABETES MELLITUS
     Dosage: DAILY DOSE: 1000 MILLIGRAM(S)
     Route: 048
  5. OXYCODONE HCL [Concomitant]
     Dosage: DAILY DOSE: 75 MILLIGRAM(S), AS USED: 15 MG, FREQUENCY: 5 TIMES A DAY
     Route: 048
     Dates: start: 20100701, end: 20100901
  6. FENTORA [Concomitant]
     Indication: BREAKTHROUGH PAIN
     Dosage: DAILY DOSE: 800 MICROGRAM(S)
     Route: 048
  7. ANDROGEL [Suspect]
     Indication: BLOOD TESTOSTERONE DECREASED
     Dosage: DAILY DOSE: 5 GRAM(S)
     Route: 062
     Dates: start: 20030101, end: 20100601
  8. OXYCODONE HCL [Concomitant]
     Indication: BREAKTHROUGH PAIN
     Dosage: DAILY DOSE:  UNKNOWN
     Route: 048
     Dates: start: 20100701, end: 20100701
  9. OXYCODONE HCL [Concomitant]
     Dosage: DAILY DOSE:  UNKNOWN
     Route: 048
     Dates: start: 20100901
  10. MUSCLE MILK [Concomitant]
     Indication: MEDICAL DIET
     Dosage: DAILY DOSE:  UNKNOWN
     Route: 048

REACTIONS (11)
  - PAIN [None]
  - SKIN WRINKLING [None]
  - SINUSITIS [None]
  - MUSCLE ATROPHY [None]
  - ILL-DEFINED DISORDER [None]
  - PNEUMONIA [None]
  - SOMNOLENCE [None]
  - LIBIDO DECREASED [None]
  - WEIGHT DECREASED [None]
  - DECREASED APPETITE [None]
  - INFLUENZA [None]
